FAERS Safety Report 5234737-1 (Version None)
Quarter: 2007Q1

REPORT INFORMATION
  Report Type: 
  Country: None (occurrence: None)
  Receive Date: 20070209
  Receipt Date: 20070129
  Transmission Date: 20070707
  Serious: Yes (Life-Threatening, Hospitalization, Other)
  Sender: FDA-Public Use
  Company Number: US-PFIZER INC-2006106850

PATIENT
  Sex: Female
  Weight: 52.2 kg

DRUGS (11)
  1. NEURONTIN [Suspect]
  2. LYRICA [Suspect]
     Indication: NEUROPATHY
     Route: 048
     Dates: start: 20060718, end: 20060807
  3. COUMADIN [Suspect]
  4. ZOCOR [Concomitant]
  5. COZAAR [Concomitant]
  6. PLAVIX [Concomitant]
  7. COREG [Concomitant]
  8. DIGITEK [Concomitant]
  9. PREDNISONE [Concomitant]
  10. ASPIRIN [Concomitant]
  11. VALIUM [Concomitant]

REACTIONS (23)
  - ABASIA [None]
  - ADVERSE EVENT [None]
  - AMNESIA [None]
  - ARTHRITIS [None]
  - ASTHENIA [None]
  - BALANCE DISORDER [None]
  - CEREBROVASCULAR ACCIDENT [None]
  - CONFUSIONAL STATE [None]
  - CONVULSION [None]
  - DIZZINESS [None]
  - DRUG LEVEL CHANGED [None]
  - DYSKINESIA [None]
  - FALL [None]
  - FATIGUE [None]
  - HEAD INJURY [None]
  - HEADACHE [None]
  - LACERATION [None]
  - MASS [None]
  - MUSCULOSKELETAL STIFFNESS [None]
  - PAIN [None]
  - SOMNOLENCE [None]
  - VASCULAR CALCIFICATION [None]
  - WOUND HAEMORRHAGE [None]
